FAERS Safety Report 5127570-2 (Version None)
Quarter: 2006Q4

REPORT INFORMATION
  Report Type: 
  Country: None (occurrence: None)
  Receive Date: 20061011
  Receipt Date: 20060922
  Transmission Date: 20070319
  Serious: Yes (Disabling)
  Sender: FDA-Public Use
  Company Number: 2006RR-03860

PATIENT
  Age: 53 Year
  Sex: Male

DRUGS (1)
  1. SIMVASTATIN [Suspect]
     Indication: HYPERCHOLESTEROLAEMIA
     Dosage: 20 MG, UNK; ORAL
     Route: 048
     Dates: start: 20051201, end: 20060801

REACTIONS (1)
  - GYNAECOMASTIA [None]
